FAERS Safety Report 7542607-9 (Version None)
Quarter: 2011Q2

REPORT INFORMATION
  Report Type: 
  Country: None (occurrence: None)
  Receive Date: 20110613
  Receipt Date: 20110607
  Transmission Date: 20111010
  Serious: Yes (Hospitalization)
  Sender: FDA-Public Use
  Company Number: FR-ROCHE-781453

PATIENT
  Sex: Female

DRUGS (6)
  1. PRIMPERAN TAB [Suspect]
     Route: 065
     Dates: start: 20110127
  2. AUGMENTIN '125' [Suspect]
     Route: 048
     Dates: start: 20110127
  3. ACUPAN [Suspect]
     Route: 030
     Dates: start: 20110127
  4. LOVENOX [Suspect]
     Route: 058
     Dates: start: 20110127
  5. VALIUM [Suspect]
     Dosage: FREQUENCY: QID
     Route: 048
     Dates: start: 20110127
  6. TERCIAN [Suspect]
     Dosage: (IN THE MORNING, AT LUNCHTIME, IN THE EVENING)
     Route: 048
     Dates: start: 20110127, end: 20110130

REACTIONS (1)
  - SINUS TACHYCARDIA [None]
